FAERS Safety Report 5480254-3 (Version None)
Quarter: 2007Q4

REPORT INFORMATION
  Report Type: 
  Country: None (occurrence: None)
  Receive Date: 20071003
  Receipt Date: 20070926
  Transmission Date: 20080405
  Serious: Yes (Hospitalization, Disabling, Other)
  Sender: FDA-Public Use
  Company Number: CAP07000327

PATIENT
  Age: 81 Year
  Sex: Female

DRUGS (3)
  1. ACTONEL [Suspect]
     Indication: OSTEOPOROSIS
     Dosage: 35 MG, 1/WEEK, ORAL
     Route: 048
     Dates: start: 20010101, end: 20070101
  2. SYNTHROID [Concomitant]
  3. MIACALCIN(CALCITONIN, SALMON) SPRAY [Concomitant]

REACTIONS (2)
  - HYPERTENSION [None]
  - OVARIAN CANCER [None]
